FAERS Safety Report 8102615-6 (Version None)
Quarter: 2011Q4

REPORT INFORMATION
  Report Type: 
  Country: None (occurrence: None)
  Receive Date: 20111222
  Receipt Date: 20110830
  Transmission Date: 20120403
  Serious: Yes (Death, Hospitalization)
  Sender: FDA-Public Use
  Company Number: UTC-009836

PATIENT
  Age: 70 Year
  Sex: Male
  Weight: 91.18 kg

DRUGS (3)
  1. TYVASO [Suspect]
     Indication: PULMONARY ARTERIAL HYPERTENSION
     Dosage: 18 - 54 MICROGRAMS (4 IN 1 D), INHALATION
     Route: 055
     Dates: start: 20101208
  2. DIURETICS (DIURETICS) [Concomitant]
  3. REVATIO [Concomitant]

REACTIONS (1)
  - ACUTE RESPIRATORY FAILURE [None]
